FAERS Safety Report 6867870-9 (Version None)
Quarter: 2010Q3

REPORT INFORMATION
  Report Type: 
  Country: None (occurrence: None)
  Receive Date: 20100722
  Receipt Date: 20080505
  Transmission Date: 20110219
  Serious: No
  Sender: FDA-Public Use
  Company Number: US-PFIZER INC-2008039742

PATIENT
  Sex: Female

DRUGS (9)
  1. CHANTIX [Suspect]
     Indication: SMOKING CESSATION THERAPY
     Dates: start: 20080401
  2. VERAPAMIL [Concomitant]
  3. CLONAZEPAM [Concomitant]
  4. IMIPRAMINE [Concomitant]
  5. ALDACTAZIDE-A [Concomitant]
  6. DOSTINEX [Concomitant]
  7. PRAVASTATIN [Concomitant]
  8. AMBIEN [Concomitant]
  9. VITAMINS [Concomitant]

REACTIONS (1)
  - ANXIETY [None]
